FAERS Safety Report 7596031-3 (Version None)
Quarter: 2011Q3

REPORT INFORMATION
  Report Type: 
  Country: None (occurrence: None)
  Receive Date: 20110707
  Receipt Date: 20110629
  Transmission Date: 20111222
  Serious: Yes (Hospitalization)
  Sender: FDA-Public Use
  Company Number: PHHO2011US07535

PATIENT
  Sex: Male
  Weight: 89.1 kg

DRUGS (3)
  1. ASPIRIN [Concomitant]
  2. FLOMAX [Suspect]
  3. EXELON [Suspect]
     Indication: DEMENTIA ALZHEIMER'S TYPE
     Dosage: 13.3 MG, QD
     Route: 062
     Dates: start: 20101113

REACTIONS (3)
  - BRADYCARDIA [None]
  - SYNCOPE [None]
  - CONCOMITANT DISEASE PROGRESSION [None]
